FAERS Safety Report 5204666-8 (Version None)
Quarter: 2007Q1

REPORT INFORMATION
  Report Type: 
  Country: None (occurrence: None)
  Receive Date: 20070110
  Receipt Date: 20060612
  Transmission Date: 20070707
  Serious: No
  Sender: FDA-Public Use
  Company Number: US-BRISTOL-MYERS SQUIBB COMPANY-13407978

PATIENT
  Age: 6 Year
  Sex: Female
  Weight: 36 kg

DRUGS (2)
  1. ABILIFY [Suspect]
     Indication: DEPRESSION
  2. NUTROPIN [Concomitant]
     Indication: GROWTH RETARDATION

REACTIONS (5)
  - ANXIETY [None]
  - OBSESSIVE-COMPULSIVE DISORDER [None]
  - PANIC ATTACK [None]
  - PARANOIA [None]
  - TREMOR [None]
